FAERS Safety Report 16807949 (Version 2)
Quarter: 2019Q3

REPORT INFORMATION
  Report Type: Spontaneous
  Country: CH (occurrence: CH)
  Receive Date: 20190915
  Receipt Date: 20190917
  Transmission Date: 20191005
  Serious: Yes (Hospitalization, Other)
  Sender: FDA-Public Use
  Company Number: CH-ASTRAZENECA-2019SF28392

PATIENT
  Age: 20416 Day
  Sex: Female

DRUGS (15)
  1. CIPROFLOXACIN. [Interacting]
     Active Substance: CIPROFLOXACIN
     Dosage: 500.0MG UNKNOWN
     Route: 048
     Dates: start: 20190823, end: 20190828
  2. MOTILIUM [Concomitant]
     Active Substance: DOMPERIDONE
     Dosage: 10.0MG UNKNOWN
     Route: 060
  3. NEXIUM [Suspect]
     Active Substance: ESOMEPRAZOLE MAGNESIUM
     Dosage: 20.0MG UNKNOWN
     Route: 048
  4. TAGRISSO [Interacting]
     Active Substance: OSIMERTINIB
     Dosage: 80.0MG UNKNOWN
     Route: 048
     Dates: start: 20190807, end: 20190825
  5. SPORANOX [Interacting]
     Active Substance: ITRACONAZOLE
     Route: 065
  6. TAGRISSO [Interacting]
     Active Substance: OSIMERTINIB
     Dosage: 40.0MG UNKNOWN
     Route: 048
     Dates: start: 20190826
  7. LEUCOVORINE CALCIUM [Concomitant]
     Active Substance: LEUCOVORIN CALCIUM
     Dosage: 15.0MG UNKNOWN
     Route: 048
  8. PASPERTIN [Concomitant]
     Dosage: 10.0MG UNKNOWN
     Route: 065
     Dates: start: 20190826
  9. TRIUMEQ [Suspect]
     Active Substance: ABACAVIR SULFATE\DOLUTEGRAVIR SODIUM\LAMIVUDINE
     Dosage: 1.0DF UNKNOWN
     Route: 048
  10. VALTREX [Suspect]
     Active Substance: VALACYCLOVIR HYDROCHLORIDE
     Dosage: 1000.0MG UNKNOWN
     Route: 065
     Dates: start: 20190823
  11. ZINAT [Suspect]
     Active Substance: CEFUROXIME AXETIL
     Dosage: 500.0MG UNKNOWN
     Route: 048
     Dates: start: 20190826
  12. BACTRIM [Suspect]
     Active Substance: SULFAMETHOXAZOLE\TRIMETHOPRIM
     Dosage: 1.0DF UNKNOWN
     Route: 048
  13. CLEXANE [Concomitant]
     Active Substance: ENOXAPARIN SODIUM
     Dosage: 40.0MG UNKNOWN
     Route: 058
     Dates: start: 20190821
  14. DAFALGAN [Concomitant]
     Active Substance: ACETAMINOPHEN
     Dosage: AS NECESSARY
     Dates: start: 20190821
  15. MEPHAMESONE [Interacting]
     Active Substance: DEXAMETHASONE
     Dosage: 2.0MG UNKNOWN
     Route: 042

REACTIONS (2)
  - Drug interaction [Not Recovered/Not Resolved]
  - Pancytopenia [Not Recovered/Not Resolved]

NARRATIVE: CASE EVENT DATE: 20190812
